FAERS Safety Report 21944643 (Version 2)
Quarter: 2023Q2

REPORT INFORMATION
  Report Type: Report from Study
  Country: US (occurrence: US)
  Receive Date: 20230202
  Receipt Date: 20230508
  Transmission Date: 20230721
  Serious: No
  Sender: FDA-Public Use
  Company Number: US-ABBVIE-4292285

PATIENT
  Sex: Male

DRUGS (2)
  1. LUPRON [Suspect]
     Active Substance: LEUPROLIDE ACETATE
     Indication: Product used for unknown indication
     Route: 065
  2. ENZALUTAMIDE [Suspect]
     Active Substance: ENZALUTAMIDE
     Indication: Prostate cancer
     Dosage: FORM STRENGTH: 160 MILLIGRAM
     Route: 048
     Dates: start: 20221208

REACTIONS (5)
  - Decreased appetite [Unknown]
  - Nausea [Unknown]
  - Flatulence [Unknown]
  - Fatigue [Unknown]
  - Abdominal distension [Unknown]
